FAERS Safety Report 24183117 (Version 1)
Quarter: 2024Q3

REPORT INFORMATION
  Report Type: Spontaneous
  Country: CA (occurrence: CA)
  Receive Date: 20240807
  Receipt Date: 20240807
  Transmission Date: 20241017
  Serious: Yes (Other)
  Sender: BAYER
  Company Number: CA-BAYER-2024A109802

PATIENT
  Age: 48 Year
  Sex: Male

DRUGS (24)
  1. CIPROFLOXACIN HYDROCHLORIDE [Suspect]
     Active Substance: CIPROFLOXACIN HYDROCHLORIDE
  2. AMOXICILLIN [Suspect]
     Active Substance: AMOXICILLIN
  3. RAMIPRIL [Suspect]
     Active Substance: RAMIPRIL
     Route: 048
  4. FAMCICLOVIR [Suspect]
     Active Substance: FAMCICLOVIR
  5. CRESEMBA [Suspect]
     Active Substance: ISAVUCONAZONIUM SULFATE
  6. HYDROMORPHONE [Suspect]
     Active Substance: HYDROMORPHONE
  7. DEXAMETHASONE [Suspect]
     Active Substance: DEXAMETHASONE
  8. ALLOPURINOL [Suspect]
     Active Substance: ALLOPURINOL
  9. PENTAMIDINE ISETHIONATE [Suspect]
     Active Substance: PENTAMIDINE ISETHIONATE
  10. CHOLECALCIFEROL [Suspect]
     Active Substance: CHOLECALCIFEROL
  11. LACTULOSE [Suspect]
     Active Substance: LACTULOSE
  12. HYDROXYUREA [Suspect]
     Active Substance: HYDROXYUREA
  13. DIPHENHYDRAMINE [Suspect]
     Active Substance: DIPHENHYDRAMINE
  14. POTASSIUM [Suspect]
     Active Substance: POTASSIUM
  15. BISACODYL [Suspect]
     Active Substance: BISACODYL
  16. MINERAL OIL [Suspect]
     Active Substance: MINERAL OIL
  17. LORAZEPAM [Suspect]
     Active Substance: LORAZEPAM
  18. FUROSEMIDE [Suspect]
     Active Substance: FUROSEMIDE
  19. METOPROLOL [Suspect]
     Active Substance: METOPROLOL
  20. LIDOCAINE [Suspect]
     Active Substance: LIDOCAINE
  21. PANTOPRAZOLE SODIUM ANHYDROUS [Suspect]
     Active Substance: PANTOPRAZOLE SODIUM ANHYDROUS
  22. NYSTATIN [Suspect]
     Active Substance: NYSTATIN
  23. POLYETHYLENE GLYCOL [Suspect]
     Active Substance: POLYETHYLENE GLYCOL
  24. SENNOSIDES [Suspect]
     Active Substance: SENNOSIDES

REACTIONS (1)
  - Febrile neutropenia [None]
